FAERS Safety Report 6985711-6 (Version None)
Quarter: 2010Q3

REPORT INFORMATION
  Report Type: 
  Country: None (occurrence: None)
  Receive Date: 20100915
  Receipt Date: 20100907
  Transmission Date: 20110219
  Serious: Yes (Other)
  Sender: FDA-Public Use
  Company Number: FR-ABBOTT-10P-056-0668667-00

PATIENT
  Sex: Female

DRUGS (1)
  1. VERCYTE [Suspect]
     Indication: THROMBOCYTOSIS

REACTIONS (1)
  - HYPERKERATOSIS [None]
